FAERS Safety Report 18044536 (Version 1)
Quarter: 2020Q3

REPORT INFORMATION
  Report Type: Spontaneous
  Country: US (occurrence: US)
  Receive Date: 20200720
  Receipt Date: 20200720
  Transmission Date: 20201103
  Serious: Yes (Hospitalization)
  Sender: FDA-Public Use
  Company Number: None

PATIENT
  Age: 55 Year
  Sex: Female

DRUGS (10)
  1. LANTUS SOLOSTAR [Concomitant]
     Active Substance: INSULIN GLARGINE
  2. EVEROLIMUS 7.5MG TAB [Suspect]
     Active Substance: EVEROLIMUS
     Indication: NEOPLASM MALIGNANT
     Route: 048
  3. JANUVIA [Concomitant]
     Active Substance: SITAGLIPTIN PHOSPHATE
  4. AFINITOR [Concomitant]
     Active Substance: EVEROLIMUS
  5. GLIMEPIRIDE. [Concomitant]
     Active Substance: GLIMEPIRIDE
  6. LEVETIRACETAM. [Concomitant]
     Active Substance: LEVETIRACETAM
  7. NOVOLOG [Concomitant]
     Active Substance: INSULIN ASPART
  8. PANTOPRAZOLE SODIUM. [Concomitant]
     Active Substance: PANTOPRAZOLE SODIUM
  9. OYSTER SHELL CALCIUM [Concomitant]
     Active Substance: CALCIUM
  10. XARELTO [Concomitant]
     Active Substance: RIVAROXABAN

REACTIONS (11)
  - Dyspnoea [None]
  - Swelling [None]
  - Product dose omission issue [None]
  - Nausea [None]
  - Skin lesion [None]
  - Stomatitis [None]
  - Chest pain [None]
  - Intra-abdominal fluid collection [None]
  - Product use complaint [None]
  - Thrombosis [None]
  - Vomiting [None]

NARRATIVE: CASE EVENT DATE: 20200711
